FAERS Safety Report 11180711 (Version 1)
Quarter: 2015Q2

REPORT INFORMATION
  Report Type: Spontaneous
  Country: US (occurrence: US)
  Receive Date: 20150611
  Receipt Date: 20150611
  Transmission Date: 20150821
  Serious: Yes (Hospitalization, Other)
  Sender: FDA-Public Use
  Company Number: US-GLAXOSMITHKLINE-US2015GSK079700

PATIENT
  Sex: Female

DRUGS (1)
  1. INCRUSE ELLIPTA [Suspect]
     Active Substance: UMECLIDINIUM BROMIDE
     Indication: CHRONIC OBSTRUCTIVE PULMONARY DISEASE
     Dosage: 62.5 MG, U
     Dates: start: 201408

REACTIONS (5)
  - Hospitalisation [Unknown]
  - Femur fracture [Unknown]
  - Wrist fracture [Unknown]
  - Muscle injury [Unknown]
  - Fall [Unknown]

NARRATIVE: CASE EVENT DATE: 2014
